FAERS Safety Report 5429416-1 (Version None)
Quarter: 2007Q3

REPORT INFORMATION
  Report Type: 
  Country: None (occurrence: None)
  Receive Date: 20070829
  Receipt Date: 20070820
  Transmission Date: 20080115
  Serious: Yes (Death, Hospitalization)
  Sender: FDA-Public Use
  Company Number: US-MERCK-0708USA03957

PATIENT
  Age: 26 Year
  Sex: Male

DRUGS (3)
  1. CANCIDAS [Suspect]
     Indication: HIV INFECTION
     Route: 042
  2. CANCIDAS [Suspect]
     Indication: RESPIRATORY FAILURE
     Route: 042
  3. [THERAPY UNSPECIFIED] [Concomitant]
     Route: 065

REACTIONS (1)
  - HIV INFECTION [None]
